FAERS Safety Report 5738585-5 (Version None)
Quarter: 2008Q2

REPORT INFORMATION
  Report Type: 
  Country: None (occurrence: None)
  Receive Date: 20080515
  Receipt Date: 20080512
  Transmission Date: 20081010
  Serious: Yes (Hospitalization)
  Sender: FDA-Public Use
  Company Number: DE-WYE-G01526008

PATIENT
  Age: 40 Year
  Sex: Male
  Weight: 75 kg

DRUGS (1)
  1. VENLAFAXINE HCL [Suspect]
     Dosage: 30 CAPSULES (OVERDOSE AMOUNT 4500MG)
     Route: 048
     Dates: start: 20080512, end: 20080512

REACTIONS (3)
  - INTENTIONAL OVERDOSE [None]
  - PERSONALITY CHANGE [None]
  - SUICIDE ATTEMPT [None]
